FAERS Safety Report 10555727 (Version 1)
Quarter: 2014Q4

REPORT INFORMATION
  Report Type: Spontaneous
  Country: US (occurrence: US)
  Receive Date: 20141030
  Receipt Date: 20141030
  Transmission Date: 20150529
  Serious: Yes (Other)
  Sender: FDA-Public Use
  Company Number: US-ABBVIE-14P-163-1302038-00

PATIENT
  Age: 57 Year
  Sex: Female

DRUGS (1)
  1. VALPROIC ACID. [Suspect]
     Active Substance: VALPROIC ACID
     Indication: PETIT MAL EPILEPSY
     Route: 065

REACTIONS (4)
  - Aggression [Recovered/Resolved]
  - Stupor [Recovered/Resolved]
  - Disorientation [Recovered/Resolved]
  - Hyperammonaemic encephalopathy [Recovered/Resolved]
